FAERS Safety Report 14893902 (Version 2)
Quarter: 2018Q2

REPORT INFORMATION
  Report Type: Spontaneous
  Country: DE (occurrence: DE)
  Receive Date: 20180514
  Receipt Date: 20180517
  Transmission Date: 20180711
  Serious: Yes (Hospitalization)
  Sender: FDA-Public Use
  Company Number: DE-ALLERGAN-1825154US

PATIENT
  Age: 47 Year
  Sex: Female
  Weight: 46 kg

DRUGS (10)
  1. NOVORAPID [Concomitant]
     Active Substance: INSULIN ASPART
     Dosage: UNK, UNKNOWN
     Route: 058
  2. FLUVASTATIN [Concomitant]
     Active Substance: FLUVASTATIN SODIUM
     Dosage: 40 MG, QPM (0-0-1-0)
     Route: 048
  3. HEPARIN [Concomitant]
     Active Substance: HEPARIN SODIUM
     Dosage: 5000 IU, BID (1-0-1-0)
     Route: 058
  4. CITALOPRAM HYDROBROMIDE - BP [Suspect]
     Active Substance: CITALOPRAM HYDROBROMIDE
     Indication: PRODUCT USED FOR UNKNOWN INDICATION
     Dosage: 10 MG, QAM (1-0-0-0)
     Route: 048
  5. DEKRISTOL [Concomitant]
     Active Substance: CHOLECALCIFEROL
     Dosage: 20000 IU, Q WEEK
     Route: 065
  6. NEXIUM [Concomitant]
     Active Substance: ESOMEPRAZOLE MAGNESIUM
     Dosage: 40 MG, QPM (0-0-1-0)
     Route: 048
  7. LASIX [Concomitant]
     Active Substance: FUROSEMIDE
     Dosage: 10 MG, QAM (1-0-0-0)
     Route: 048
  8. CERTICAN [Concomitant]
     Active Substance: EVEROLIMUS
     Dosage: 2 MG, BID (1-0-1-0)
     Route: 048
  9. ZYLORIC [Concomitant]
     Active Substance: ALLOPURINOL
     Dosage: 100 MG, QAM (1-0-0-0)
     Route: 048
  10. SANDIMMUN [Concomitant]
     Active Substance: CYCLOSPORINE
     Dosage: 100 MG, BID (1-0-1-0)
     Route: 048

REACTIONS (3)
  - Disorientation [Unknown]
  - Medication error [Unknown]
  - Accidental overdose [Unknown]

NARRATIVE: CASE EVENT DATE: 20150921
